FAERS Safety Report 15209824 (Version 1)
Quarter: 2018Q3

REPORT INFORMATION
  Report Type: Spontaneous
  Country: US (occurrence: US)
  Receive Date: 20180629
  Receipt Date: 20180629
  Transmission Date: 20181010
  Serious: No
  Sender: FDA-Public Use
  Company Number: None

PATIENT
  Age: 30 Month
  Sex: Male
  Weight: 19.8 kg

DRUGS (2)
  1. FLUTICASONE PROPIONATE NASAL SPRAY USP [Suspect]
     Active Substance: FLUTICASONE PROPIONATE
     Indication: NASAL CONGESTION
     Dosage: ?          QUANTITY:2 DF DOSAGE FORM;?
     Route: 045
  2. FLINTSTONE GUMMIES [Concomitant]

REACTIONS (2)
  - Adenoidal hypertrophy [None]
  - Sinus disorder [None]

NARRATIVE: CASE EVENT DATE: 20171108
